FAERS Safety Report 25233293 (Version 1)
Quarter: 2025Q2

REPORT INFORMATION
  Report Type: Spontaneous
  Country: US (occurrence: US)
  Receive Date: 20250424
  Receipt Date: 20250424
  Transmission Date: 20250716
  Serious: Yes (Hospitalization, Other)
  Sender: COOPERSURGICAL
  Company Number: US-COOPERSURGICAL, INC.-2025CPS003090

PATIENT
  Age: 23 Year
  Sex: Female
  Weight: 81.179 kg

DRUGS (2)
  1. PARAGARD T 380A [Suspect]
     Active Substance: COPPER
     Indication: Contraception
     Route: 015
     Dates: start: 20100701
  2. XANAX [Concomitant]
     Active Substance: ALPRAZOLAM
     Dates: start: 201401, end: 201405

REACTIONS (22)
  - Cervix carcinoma [Unknown]
  - Depression [Not Recovered/Not Resolved]
  - High risk pregnancy [Recovered/Resolved]
  - Caesarean section [Recovered/Resolved]
  - Reproductive complication associated with device [Not Recovered/Not Resolved]
  - Infertility female [Not Recovered/Not Resolved]
  - Post-traumatic stress disorder [Unknown]
  - Abortion spontaneous [Recovered/Resolved]
  - Ovarian cyst [Not Recovered/Not Resolved]
  - Alcohol abuse [Unknown]
  - Drug abuse [Unknown]
  - Drug dependence [Unknown]
  - Device breakage [Recovered/Resolved]
  - Foreign body in reproductive tract [Recovered/Resolved]
  - Complication of device removal [Recovered/Resolved]
  - Pregnancy with contraceptive device [Recovered/Resolved]
  - Drug ineffective [Unknown]
  - Pelvic inflammatory disease [Not Recovered/Not Resolved]
  - Emotional distress [Not Recovered/Not Resolved]
  - Anxiety [Unknown]
  - Complication associated with device [Recovered/Resolved]
  - Abnormal uterine bleeding [Not Recovered/Not Resolved]

NARRATIVE: CASE EVENT DATE: 20120201
